FAERS Safety Report 7984682-3 (Version None)
Quarter: 2011Q4

REPORT INFORMATION
  Report Type: 
  Country: None (occurrence: None)
  Receive Date: 20111216
  Receipt Date: 20110903
  Transmission Date: 20120403
  Serious: No
  Sender: FDA-Public Use
  Company Number: US-GLAXOSMITHKLINE-A0943584A

PATIENT
  Age: 80 Year
  Sex: Male
  Weight: 120.9 kg

DRUGS (1)
  1. PROMACTA [Suspect]
     Indication: PRODUCT USED FOR UNKNOWN INDICATION
     Dosage: 50MG PER DAY
     Route: 048
     Dates: start: 20100913

REACTIONS (2)
  - URINARY TRACT INFECTION [None]
  - BLOOD URINE PRESENT [None]
